FAERS Safety Report 7744164-0 (Version None)
Quarter: 2011Q3

REPORT INFORMATION
  Report Type: 
  Country: None (occurrence: None)
  Receive Date: 20110912
  Receipt Date: 20110907
  Transmission Date: 20111222
  Serious: No
  Sender: FDA-Public Use
  Company Number: US-PFIZER INC-2011209920

PATIENT
  Age: 45 Year
  Sex: Female
  Weight: 54.4 kg

DRUGS (3)
  1. DEPO-PROVERA [Suspect]
     Indication: MIGRAINE
  2. IMITREX [Concomitant]
     Indication: MIGRAINE
     Dosage: UNK
  3. DEPO-PROVERA [Suspect]
     Indication: OFF LABEL USE
     Dosage: UNK
     Dates: start: 20110515

REACTIONS (1)
  - MENORRHAGIA [None]
